FAERS Safety Report 14716419 (Version 1)
Quarter: 2018Q2

REPORT INFORMATION
  Report Type: Spontaneous
  Country: DE (occurrence: DE)
  Receive Date: 20180404
  Receipt Date: 20180404
  Transmission Date: 20180711
  Serious: Yes (Other)
  Sender: FDA-Public Use
  Company Number: PHHY2018DE055604

PATIENT
  Sex: Female
  Weight: 52 kg

DRUGS (4)
  1. DESFERAL [Suspect]
     Active Substance: DEFEROXAMINE MESYLATE
     Indication: THALASSAEMIA BETA
     Route: 065
  2. EXJADE [Suspect]
     Active Substance: DEFERASIROX
     Dosage: UNK UNK, QD
     Route: 065
     Dates: start: 201701
  3. EXJADE [Suspect]
     Active Substance: DEFERASIROX
     Dosage: 2X360 MG, QD
     Route: 065
     Dates: end: 20180326
  4. EXJADE [Suspect]
     Active Substance: DEFERASIROX
     Indication: THALASSAEMIA BETA
     Dosage: 3X500 MG, QOD
     Route: 065
     Dates: end: 201701

REACTIONS (9)
  - Atrial fibrillation [Unknown]
  - Hepatic fibrosis [Unknown]
  - Concomitant disease aggravated [Unknown]
  - Hepatitis [Unknown]
  - Drug ineffective [Unknown]
  - Drug administration error [Unknown]
  - Blood iron increased [Unknown]
  - Diarrhoea [Unknown]
  - Hypertension [Unknown]
